FAERS Safety Report 8450550-6 (Version None)
Quarter: 2012Q2

REPORT INFORMATION
  Report Type: 
  Country: None (occurrence: None)
  Receive Date: 20120620
  Receipt Date: 20120606
  Transmission Date: 20120825
  Serious: Yes (Other)
  Sender: FDA-Public Use
  Company Number: FR-RANBAXY-2012RR-56990

PATIENT
  Age: 74 Year
  Sex: Female
  Weight: 60 kg

DRUGS (3)
  1. LIDOCAINE AND EPINEPHRINE [Interacting]
     Dosage: 80 MG, UNK
     Route: 042
  2. FLECAINIDE ACETATE [Suspect]
     Indication: ATRIAL FIBRILLATION
     Route: 065
  3. LIDOCAINE AND EPINEPHRINE [Interacting]
     Indication: ANAESTHESIA
     Dosage: 300 MG, UNK
     Route: 042

REACTIONS (2)
  - DRUG INTERACTION [None]
  - MYOCLONUS [None]
